FAERS Safety Report 17793731 (Version 1)
Quarter: 2020Q2

REPORT INFORMATION
  Report Type: Spontaneous
  Country: FR (occurrence: FR)
  Receive Date: 20200515
  Receipt Date: 20200515
  Transmission Date: 20200714
  Serious: Yes (Hospitalization)
  Sender: FDA-Public Use
  Company Number: NVSC2020FR130134

PATIENT
  Age: 30 Year
  Sex: Female

DRUGS (1)
  1. METOPROLOL. [Suspect]
     Active Substance: METOPROLOL
     Indication: MIGRAINE
     Dosage: 4 G
     Route: 065

REACTIONS (4)
  - Hypotension [Unknown]
  - Toxicity to various agents [Unknown]
  - Suicide attempt [Unknown]
  - Sinus bradycardia [Unknown]
